FAERS Safety Report 8887069 (Version 4)
Quarter: 2014Q2

REPORT INFORMATION
  Report Type: Report from Study
  Country: US (occurrence: US)
  Receive Date: 20121105
  Receipt Date: 20140505
  Transmission Date: 20141212
  Serious: Yes (Hospitalization, Other)
  Sender: FDA-Public Use
  Company Number: PHEH2012US021089

PATIENT
  Sex: Female

DRUGS (25)
  1. DIOVAN [Suspect]
     Indication: HYPERTENSION
     Dosage: 320 MG, QD
     Route: 048
  2. DIOVAN HCT [Suspect]
     Dosage: UNK UKN, UNK
  3. RECLAST [Suspect]
     Indication: OSTEITIS DEFORMANS
     Dosage: UNK UKN, UNK
     Route: 042
  4. FLUCONAZOLE [Suspect]
     Dosage: UNK UKN, UNK
  5. ASPIRIN [Suspect]
  6. TORADOL [Suspect]
  7. PARADOL//PARACETAMOL [Suspect]
     Dosage: UNK UKN, UNK
     Route: 048
  8. OXYBUTYNIN [Concomitant]
     Dosage: 10 MG, UNK
     Route: 048
  9. WARFARIN [Concomitant]
     Dosage: UNK UKN, UNK
     Route: 048
  10. OXYBUTIN [Concomitant]
     Dosage: 10 MG, UNK
  11. HYDROCHLOROTHIAZIDE [Concomitant]
     Indication: POLYURIA
     Dosage: 12.5 MG, UNK
     Route: 048
  12. LASIX [Concomitant]
     Dosage: UNK UKN, UNK
     Route: 048
  13. VITAMIN D [Concomitant]
     Dosage: UNK UKN, UNK
     Route: 048
  14. CALCIUM [Concomitant]
     Dosage: UNK UKN, UNK
     Route: 048
  15. VITAMIN C [Concomitant]
     Dosage: 1000 U, UNK
  16. MULTIVIT//VITAMINS NOS [Concomitant]
     Dosage: UNK UKN, UNK
  17. ANTIOXIDANT                        /02147801/ [Concomitant]
     Dosage: 200 IU, UNK
  18. VITAMIN E [Concomitant]
     Dosage: 25 MG, UNK
  19. BETA CAROTEN [Concomitant]
     Dosage: UNK UKN, UNK
  20. CO Q10 [Concomitant]
     Dosage: 200 MG, UNK
  21. BIOTIN [Concomitant]
     Dosage: UNK UKN, UNK
  22. KRILL OIL [Concomitant]
     Dosage: UNK UKN, UNK
  23. VITAMIN D3 [Concomitant]
     Dosage: 5000 IU, UNK
  24. VOLTAREN//DICLOFENAC [Concomitant]
     Dosage: UNK UKN, UNK
  25. LOVENOX [Concomitant]
     Dosage: AS NEEDED

REACTIONS (18)
  - Nervous system disorder [Unknown]
  - Gastrointestinal disorder [Unknown]
  - Drug hypersensitivity [Unknown]
  - Lip swelling [Unknown]
  - Dyspnoea [Unknown]
  - Dizziness [Unknown]
  - Pharyngeal oedema [Unknown]
  - Eye swelling [Unknown]
  - Peripheral swelling [Unknown]
  - Cardiac disorder [Unknown]
  - Muscle spasms [Unknown]
  - Back disorder [Unknown]
  - Device malfunction [Unknown]
  - Wound [Unknown]
  - Malaise [Unknown]
  - Back pain [Unknown]
  - Fatigue [Unknown]
  - Hypertension [Unknown]
